FAERS Safety Report 18386176 (Version 1)
Quarter: 2020Q4

REPORT INFORMATION
  Report Type: Spontaneous
  Country: US (occurrence: US)
  Receive Date: 20201015
  Receipt Date: 20201015
  Transmission Date: 20210114
  Serious: Yes (Other)
  Sender: FDA-Public Use
  Company Number: US-PFIZER INC-2020399324

PATIENT
  Age: 38 Year
  Sex: Female

DRUGS (5)
  1. ERRIN [ERYTHROMYCIN] [Concomitant]
     Dosage: 0.35 MG
  2. ZYRTEC D 12 HOUR [Concomitant]
     Active Substance: CETIRIZINE HYDROCHLORIDE\PSEUDOEPHEDRINE HYDROCHLORIDE
     Dosage: UNK (12 H)
  3. EMERGEN-C [Concomitant]
     Active Substance: VITAMINS
     Dosage: UNK (1000 MG)
  4. PROBIOTIC 10 [Concomitant]
     Active Substance: DIETARY SUPPLEMENT\PROBIOTICS
     Dosage: UNK
  5. XELJANZ [Suspect]
     Active Substance: TOFACITINIB CITRATE
     Indication: PSORIATIC ARTHROPATHY
     Dosage: 5 MG, 2X/DAY
     Route: 048
     Dates: start: 202007, end: 2020

REACTIONS (2)
  - Ovarian cyst ruptured [Unknown]
  - Ovarian cyst [Unknown]
